FAERS Safety Report 4307092-9 (Version None)
Quarter: 2004Q1

REPORT INFORMATION
  Report Type: 
  Country: None (occurrence: None)
  Receive Date: 20040227
  Receipt Date: 20040217
  Transmission Date: 20041129
  Serious: Yes (Other)
  Sender: FDA-Public Use
  Company Number: PHBS2004IT02414

PATIENT
  Age: 78 Year
  Sex: Female

DRUGS (4)
  1. LOPRESSOR [Suspect]
     Dosage: 100 MG/DAY
     Route: 048
     Dates: start: 20030101
  2. VASTAREL [Suspect]
     Dosage: 20 MG/DAY
     Dates: start: 20031104, end: 20031105
  3. ASPIRIN [Concomitant]
  4. MODURETIC 5-50 [Concomitant]

REACTIONS (1)
  - SYNCOPE [None]
